FAERS Safety Report 4721694-7 (Version None)
Quarter: 2005Q3

REPORT INFORMATION
  Report Type: 
  Country: None (occurrence: None)
  Receive Date: 20050721
  Receipt Date: 20050301
  Transmission Date: 20060218
  Serious: No
  Sender: FDA-Public Use
  Company Number: US-BRISTOL-MYERS SQUIBB COMPANY-12881306

PATIENT
  Age: 81 Year
  Sex: Female
  Weight: 43 kg

DRUGS (5)
  1. COUMADIN [Suspect]
     Indication: ATRIAL FIBRILLATION
     Route: 048
     Dates: start: 20050201
  2. HYZAAR [Concomitant]
  3. PENTOXIFYLLINE [Concomitant]
  4. ZOCOR [Concomitant]
  5. DILTIAZEM HCL [Concomitant]

REACTIONS (1)
  - HEADACHE [None]
